FAERS Safety Report 8283196-3 (Version None)
Quarter: 2012Q2

REPORT INFORMATION
  Report Type: 
  Country: None (occurrence: None)
  Receive Date: 20120413
  Receipt Date: 20120405
  Transmission Date: 20120825
  Serious: Yes (Other)
  Sender: FDA-Public Use
  Company Number: US-MERCK-1204USA00994

PATIENT
  Age: 76 Year
  Sex: Female

DRUGS (2)
  1. PREDNISONE [Concomitant]
     Route: 065
  2. FOSAMAX [Suspect]
     Indication: WRIST FRACTURE
     Route: 048

REACTIONS (4)
  - FEMUR FRACTURE [None]
  - SPINAL COMPRESSION FRACTURE [None]
  - OSTEOPOROSIS [None]
  - STERNAL FRACTURE [None]
